FAERS Safety Report 14011667 (Version 1)
Quarter: 2017Q3

REPORT INFORMATION
  Report Type: Spontaneous
  Country: US (occurrence: US)
  Receive Date: 20170926
  Receipt Date: 20170926
  Transmission Date: 20171128
  Serious: No
  Sender: FDA-Public Use
  Company Number: US-ASTRAZENECA-2017SE96436

PATIENT
  Age: 28442 Day
  Sex: Male
  Weight: 98.4 kg

DRUGS (2)
  1. IRON [Concomitant]
     Active Substance: IRON
     Dosage: DAILY
     Route: 065
  2. SYMBICORT [Suspect]
     Active Substance: BUDESONIDE\FORMOTEROL FUMARATE DIHYDRATE
     Indication: DYSPNOEA
     Dosage: 160/4.5 MCG 2 PUFFS TWICE A DAY
     Route: 055
     Dates: start: 2017

REACTIONS (11)
  - Gait disturbance [Unknown]
  - Dyspnoea [Unknown]
  - Chronic obstructive pulmonary disease [Not Recovered/Not Resolved]
  - Mobility decreased [Unknown]
  - Spinal column stenosis [Unknown]
  - Catarrh [Recovering/Resolving]
  - Off label use [Not Recovered/Not Resolved]
  - Sinus disorder [Not Recovered/Not Resolved]
  - Cardiac disorder [Unknown]
  - Product use in unapproved indication [Not Recovered/Not Resolved]
  - Back pain [Not Recovered/Not Resolved]

NARRATIVE: CASE EVENT DATE: 20170901
